FAERS Safety Report 9638815 (Version 1)
Quarter: 2013Q4

REPORT INFORMATION
  Report Type: Spontaneous
  Country: US (occurrence: US)
  Receive Date: 20131022
  Receipt Date: 20131022
  Transmission Date: 20140711
  Serious: No
  Sender: FDA-Public Use
  Company Number: US-BRISTOL-MYERS SQUIBB COMPANY-19186717

PATIENT
  Age: 70 Year
  Sex: Male

DRUGS (7)
  1. ELIQUIS [Suspect]
  2. FUROSEMIDE [Concomitant]
  3. PACERONE [Concomitant]
  4. QUINAPRIL [Concomitant]
  5. METOPROLOL [Concomitant]
  6. KLOR-CON [Concomitant]
  7. CRESTOR [Concomitant]

REACTIONS (1)
  - Dry skin [Recovering/Resolving]
